FAERS Safety Report 21105381 (Version 9)
Quarter: 2023Q2

REPORT INFORMATION
  Report Type: Spontaneous
  Country: US (occurrence: US)
  Receive Date: 20220720
  Receipt Date: 20230519
  Transmission Date: 20230721
  Serious: Yes (Other)
  Sender: FDA-Public Use
  Company Number: US-PFIZER INC-202200976214

PATIENT
  Age: 85 Year
  Sex: Female
  Weight: 62.132 kg

DRUGS (5)
  1. IBRANCE [Suspect]
     Active Substance: PALBOCICLIB
     Indication: Breast cancer metastatic
     Dosage: 100 MG
  2. IBRANCE [Suspect]
     Active Substance: PALBOCICLIB
     Dosage: 75 MG, CYCLIC (ONCE A DAY FOR 21 CONTINUOUS DAYS, OFF FOR 7 DAYS, EVERY 28 DAYS)
  3. IBRANCE [Suspect]
     Active Substance: PALBOCICLIB
     Dosage: 100 MG
  4. IBRANCE [Suspect]
     Active Substance: PALBOCICLIB
     Dosage: 75 MG, CYCLIC (ONCE A DAY FOR 21 DAYS AND THEN 7 DAYS OFF)
     Dates: start: 202105
  5. FASLODEX [Concomitant]
     Active Substance: FULVESTRANT
     Dosage: UNK
     Dates: start: 202105

REACTIONS (3)
  - Liver injury [Recovered/Resolved]
  - Weight decreased [Recovered/Resolved]
  - Product dispensing error [Unknown]

NARRATIVE: CASE EVENT DATE: 20221001
